FAERS Safety Report 5206829-4 (Version None)
Quarter: 2006Q4

REPORT INFORMATION
  Report Type: 
  Country: None (occurrence: None)
  Receive Date: 20061026
  Receipt Date: 20060820
  Transmission Date: 20070319
  Serious: No
  Sender: FDA-Public Use
  Company Number: 2006101603

PATIENT
  Age: 91 Year
  Sex: Male

DRUGS (1)
  1. LYRICA [Suspect]
     Indication: NEUROPATHY PERIPHERAL
     Dosage: 225 MG (75 MG, 3 IN 1 D), ORAL
     Route: 048
     Dates: start: 20060101, end: 20060101

REACTIONS (2)
  - DIARRHOEA [None]
  - HYPERSENSITIVITY [None]
